FAERS Safety Report 16513856 (Version 1)
Quarter: 2019Q3

REPORT INFORMATION
  Report Type: Spontaneous
  Country: US (occurrence: US)
  Receive Date: 20190701
  Receipt Date: 20190701
  Transmission Date: 20191004
  Serious: No
  Sender: FDA-Public Use
  Company Number: US-ROCHE-2211957

PATIENT
  Sex: Male

DRUGS (2)
  1. KLONOPIN [Suspect]
     Active Substance: CLONAZEPAM
     Indication: ANXIETY
     Dosage: GENERIC PRODUCT
     Route: 048
     Dates: start: 2005
  2. KLONOPIN [Suspect]
     Active Substance: CLONAZEPAM
     Dosage: 1 AND A HALF TABLETS A DAY
     Route: 048

REACTIONS (3)
  - Wrong technique in product usage process [Unknown]
  - Product colour issue [Unknown]
  - Drug ineffective [Unknown]
